FAERS Safety Report 18007814 (Version 2)
Quarter: 2020Q3

REPORT INFORMATION
  Report Type: Report from Study
  Country: FR (occurrence: FR)
  Receive Date: 20200710
  Receipt Date: 20200730
  Transmission Date: 20201103
  Serious: Yes (Hospitalization, Other)
  Sender: FDA-Public Use
  Company Number: FR-JNJFOC-20180215169

PATIENT
  Age: 53 Year
  Sex: Female
  Weight: 105 kg

DRUGS (22)
  1. SEROPLEX [Concomitant]
     Active Substance: ESCITALOPRAM OXALATE
     Dosage: AT MORNING
     Route: 048
     Dates: end: 20180209
  2. CLOBETASOL [Concomitant]
     Active Substance: CLOBETASOL
     Route: 065
     Dates: start: 20150302
  3. DIPROSALIC [Concomitant]
     Active Substance: BETAMETHASONE DIPROPIONATE
     Route: 065
  4. NOCTAMIDE [Concomitant]
     Active Substance: LORMETAZEPAM
     Dosage: AT BEDTIME
     Route: 048
     Dates: end: 20180219
  5. XEROQUEL [Concomitant]
     Active Substance: QUETIAPINE FUMARATE
     Dosage: 2 TABLETS AT BEDTIME
     Route: 048
     Dates: end: 20180209
  6. STELARA [Suspect]
     Active Substance: USTEKINUMAB
     Route: 058
     Dates: start: 20170310, end: 20170407
  7. LEVOTHYROX [Concomitant]
     Active Substance: LEVOTHYROXINE
     Dosage: AT MORNING
     Route: 048
     Dates: end: 20180209
  8. PRIMPERAN [Concomitant]
     Active Substance: METOCLOPRAMIDE HYDROCHLORIDE
     Dosage: TABLET MORNING, MIDDAY AND NIGHT
     Route: 048
     Dates: end: 20180209
  9. VALIUM [Concomitant]
     Active Substance: DIAZEPAM
     Dosage: AT BEDTIME
     Route: 048
     Dates: end: 20180209
  10. STELARA [Suspect]
     Active Substance: USTEKINUMAB
     Route: 058
     Dates: start: 20170407, end: 201707
  11. STELARA [Suspect]
     Active Substance: USTEKINUMAB
     Route: 058
     Dates: start: 201803, end: 20200515
  12. CRESTOR [Concomitant]
     Active Substance: ROSUVASTATIN CALCIUM
     Route: 065
     Dates: start: 20140319
  13. INEXIUM [Concomitant]
     Active Substance: ESOMEPRAZOLE
     Dosage: 1 TABLET AT NIGHT
     Route: 048
     Dates: end: 20180209
  14. LORMETAZEPAM [Concomitant]
     Active Substance: LORMETAZEPAM
  15. NOVONORM [Concomitant]
     Active Substance: REPAGLINIDE
  16. LOPERAMIDE [Concomitant]
     Active Substance: LOPERAMIDE
  17. STELARA [Suspect]
     Active Substance: USTEKINUMAB
     Indication: PSORIASIS
     Route: 058
     Dates: start: 20140202, end: 20140302
  18. COLCHIMAX [Concomitant]
     Dosage: 1 TABLET AT MORNING
     Route: 048
     Dates: end: 20180209
  19. STELARA [Suspect]
     Active Substance: USTEKINUMAB
     Route: 058
     Dates: start: 20140302, end: 201506
  20. TARDYFERON [Concomitant]
     Active Substance: FERROUS SULFATE
     Dosage: TABLET AT MORNING
     Route: 048
     Dates: end: 20180209
  21. LANSOPRAZOLE. [Concomitant]
     Active Substance: LANSOPRAZOLE
  22. CALCITRIOL. [Concomitant]
     Active Substance: CALCITRIOL
     Route: 065

REACTIONS (15)
  - Lymphadenopathy [Not Recovered/Not Resolved]
  - Product use issue [Unknown]
  - Suspected COVID-19 [Unknown]
  - Off label use [Unknown]
  - Breast neoplasm [Unknown]
  - Night sweats [Not Recovered/Not Resolved]
  - Cerebrovascular accident [Unknown]
  - Iron deficiency [Unknown]
  - Product dose omission issue [Unknown]
  - Non-alcoholic steatohepatitis [Unknown]
  - Depression [Unknown]
  - Suicide attempt [Unknown]
  - Psoriasis [Unknown]
  - Anaemia [Unknown]
  - Weight decreased [Not Recovered/Not Resolved]

NARRATIVE: CASE EVENT DATE: 20140202
